FAERS Safety Report 11197944 (Version 1)
Quarter: 2015Q2

REPORT INFORMATION
  Report Type: Spontaneous
  Country: US (occurrence: US)
  Receive Date: 20150617
  Receipt Date: 20150617
  Transmission Date: 20150821
  Serious: No
  Sender: FDA-Public Use
  Company Number: US-GALDERMA-US15002189

PATIENT
  Age: 65 Year
  Sex: Female

DRUGS (11)
  1. NEUTROGENA ULTRA SHEER SPF 30 [Concomitant]
     Indication: PROPHYLAXIS AGAINST SOLAR RADIATION
     Route: 061
     Dates: end: 20150419
  2. L^OREAL MINERAL POWDER [Concomitant]
     Indication: PROPHYLAXIS AGAINST SOLAR RADIATION
     Route: 061
  3. JOHNSONS BABY WASH [Concomitant]
     Indication: THERAPEUTIC SKIN CARE TOPICAL
     Route: 061
  4. L^OREAL MINERAL POWDER [Concomitant]
     Indication: THERAPEUTIC SKIN CARE TOPICAL
  5. BABY SOAP [Concomitant]
     Indication: THERAPEUTIC SKIN CARE TOPICAL
     Route: 061
  6. NEUTROGENA BREAKOUT FREE LOTION WITH SPF 55 [Concomitant]
     Indication: PROPHYLAXIS AGAINST SOLAR RADIATION
     Route: 061
     Dates: start: 20150419
  7. ESTRACE [Concomitant]
     Active Substance: ESTRADIOL
     Dosage: 2.5 MG
  8. NORA BE [Concomitant]
     Active Substance: NORETHINDRONE
     Dates: end: 201502
  9. MIRVASO [Suspect]
     Active Substance: BRIMONIDINE TARTRATE
     Indication: ROSACEA
     Dosage: 0.33%
     Route: 061
     Dates: start: 20150418, end: 20150423
  10. ESTRACE [Concomitant]
     Active Substance: ESTRADIOL
     Indication: HORMONE REPLACEMENT THERAPY
     Dosage: 0.5 MG
     Dates: start: 201502
  11. NORA BE [Concomitant]
     Active Substance: NORETHINDRONE
     Indication: HORMONE REPLACEMENT THERAPY
     Dosage: 35 MG
     Dates: start: 201502

REACTIONS (6)
  - Drug ineffective for unapproved indication [Recovered/Resolved]
  - Flushing [Recovered/Resolved]
  - Acne [Recovered/Resolved]
  - Erythema [Recovered/Resolved]
  - Nasal discomfort [Recovered/Resolved]
  - Off label use [Recovered/Resolved]

NARRATIVE: CASE EVENT DATE: 20150419
